FAERS Safety Report 18532920 (Version 1)
Quarter: 2020Q4

REPORT INFORMATION
  Report Type: Spontaneous
  Country: US (occurrence: US)
  Receive Date: 20201123
  Receipt Date: 20201123
  Transmission Date: 20210114
  Serious: Yes (Other)
  Sender: FDA-Public Use
  Company Number: US-GLENMARK PHARMACEUTICALS-2020GMK050535

PATIENT
  Age: 77 Year
  Sex: Male

DRUGS (1)
  1. TRIAMCINOLONE ACETONIDE. [Suspect]
     Active Substance: TRIAMCINOLONE ACETONIDE
     Indication: MACULAR FIBROSIS
     Dosage: UNK; ROUTE: INTRAVITREAL
     Route: 031

REACTIONS (2)
  - Eye infection toxoplasmal [Recovering/Resolving]
  - Blindness [Not Recovered/Not Resolved]
